FAERS Safety Report 23630109 (Version 2)
Quarter: 2024Q1

REPORT INFORMATION
  Report Type: Report from Study
  Country: BR (occurrence: BR)
  Receive Date: 20240314
  Receipt Date: 20240326
  Transmission Date: 20240410
  Serious: Yes (Other)
  Sender: FDA-Public Use
  Company Number: BR-BoehringerIngelheim-2024-BI-014138

PATIENT
  Age: 82 Year
  Sex: Male
  Weight: 71 kg

DRUGS (3)
  1. PRADAXA [Suspect]
     Active Substance: DABIGATRAN ETEXILATE MESYLATE
     Indication: Arteriosclerosis
     Route: 048
     Dates: start: 2020
  2. PRADAXA [Suspect]
     Active Substance: DABIGATRAN ETEXILATE MESYLATE
     Indication: Arteriosclerosis coronary artery
     Route: 048
     Dates: end: 202309
  3. PRADAXA [Suspect]
     Active Substance: DABIGATRAN ETEXILATE MESYLATE
     Dosage: (MORNING AND AFTERNOON)
     Route: 048
     Dates: start: 20230920

REACTIONS (4)
  - Ischaemic stroke [Not Recovered/Not Resolved]
  - Cardiac pacemaker insertion [Unknown]
  - Muscular weakness [Unknown]
  - Aphasia [Unknown]

NARRATIVE: CASE EVENT DATE: 20230919
